FAERS Safety Report 9005149 (Version 2)
Quarter: 2013Q4

REPORT INFORMATION
  Report Type: Spontaneous
  Country: US (occurrence: None)
  Receive Date: 20120515
  Receipt Date: 20131226
  Transmission Date: 20140711
  Serious: Yes (Other)
  Sender: FDA-Public Use
  Company Number: PHEH2012US003624

PATIENT
  Age: 50 Year
  Sex: Female
  Weight: 94.8 kg

DRUGS (2)
  1. ZORTRESS [Suspect]
     Indication: TRANSPLANT
     Dosage: 0.75 MG, 1 TABLET IN MORNING AND 2 TABLETS IN EVENING, ORAL
     Dates: start: 20111101
  2. MYFORTIC (MYCOPHENOLATE SODIUM) [Concomitant]

REACTIONS (1)
  - Mouth ulceration [None]
